FAERS Safety Report 17631835 (Version 2)
Quarter: 2020Q2

REPORT INFORMATION
  Report Type: Spontaneous
  Country: AT (occurrence: AT)
  Receive Date: 20200406
  Receipt Date: 20200416
  Transmission Date: 20200713
  Serious: Yes (Other)
  Sender: FDA-Public Use
  Company Number: AT-TEVA-2020-AT-1219239

PATIENT
  Age: 77 Year
  Sex: Female

DRUGS (8)
  1. AMLODIPIN 5 MG TABLETTEN [Concomitant]
     Route: 048
  2. GLYXAMBI [Suspect]
     Active Substance: EMPAGLIFLOZIN\LINAGLIPTIN
     Dosage: 1 DOSAGE FORMS DAILY; } 1/2 YEAR
     Route: 048
     Dates: start: 2019
  3. CO-RENITEC 20 MG/12,5 MG TABLETTEN [Concomitant]
     Route: 048
  4. CONCOR 5 MG - FILMTABLETTEN [Concomitant]
  5. METFORMIN HYDROCHLORIDE. [Suspect]
     Active Substance: METFORMIN HYDROCHLORIDE
     Indication: DIABETES MELLITUS
     Dosage: 1000 MILLIGRAM DAILY; 1-0-0
     Route: 065
     Dates: start: 2019, end: 202003
  6. CRESTOR [Concomitant]
     Active Substance: ROSUVASTATIN CALCIUM
     Dosage: 20 MILLIGRAM DAILY; 0-0-1
     Route: 048
  7. MADOPAR 100 MG/25 MG - TABLETTEN [Concomitant]
     Dosage: 1 DOSAGE FORMS DAILY; 0-0-1
     Route: 048
  8. THYREX 100 MIKROGRAMM - TABLETTEN [Concomitant]
     Dosage: 100 MICROGRAM DAILY; 1-0-0

REACTIONS (4)
  - Euglycaemic diabetic ketoacidosis [Recovered/Resolved]
  - Duodenal ulcer [Not Recovered/Not Resolved]
  - Atrial fibrillation [Not Recovered/Not Resolved]
  - Tachycardia [Not Recovered/Not Resolved]

NARRATIVE: CASE EVENT DATE: 202003
